FAERS Safety Report 7214535-X (Version None)
Quarter: 2011Q1

REPORT INFORMATION
  Report Type: 
  Country: None (occurrence: None)
  Receive Date: 20110107
  Receipt Date: 20110104
  Transmission Date: 20110831
  Serious: Yes (Life-Threatening, Hospitalization)
  Sender: FDA-Public Use
  Company Number: US-US-EMD SERONO, INC.-7027089

PATIENT
  Sex: Female

DRUGS (5)
  1. UNSPECIFIED BLOOD PRESSURE MEDICATION [Concomitant]
     Indication: HYPERTENSION
  2. REBIF [Suspect]
     Indication: MULTIPLE SCLEROSIS
     Route: 058
     Dates: start: 20091112, end: 20100101
  3. UNSPECIFIED THYROID MEDICATION [Concomitant]
     Indication: HYPOTHYROIDISM
  4. UNSPECIFIED CHOLESTEROL MEDICATION [Concomitant]
     Indication: BLOOD CHOLESTEROL INCREASED
  5. UNSPECIFIED OSTEOPOROSIS MEDICATION [Concomitant]
     Indication: OSTEOPOROSIS

REACTIONS (7)
  - EXTRADURAL ABSCESS [None]
  - PNEUMONIA [None]
  - MEMORY IMPAIRMENT [None]
  - COMA [None]
  - HYPOXIA [None]
  - ASTHENIA [None]
  - SEPSIS [None]
